FAERS Safety Report 19760011 (Version 1)
Quarter: 2021Q3

REPORT INFORMATION
  Report Type: Spontaneous
  Country: IN (occurrence: IN)
  Receive Date: 20210830
  Receipt Date: 20210830
  Transmission Date: 20211014
  Serious: No
  Sender: FDA-Public Use
  Company Number: IN-LUPIN LIMITED-2021-14579

PATIENT

DRUGS (1)
  1. TELISTA?H TAB UNCOATED [Suspect]
     Active Substance: HYDROCHLOROTHIAZIDE\TELMISARTAN
     Indication: BLOOD PRESSURE ABNORMAL
     Dosage: 40 MILLIGRAM, QD (SINCE LAST 2 WEEK)
     Route: 065
     Dates: start: 2021

REACTIONS (3)
  - Restlessness [Recovering/Resolving]
  - Nervousness [Unknown]
  - Insomnia [Recovered/Resolved]

NARRATIVE: CASE EVENT DATE: 2021
